FAERS Safety Report 17525721 (Version 3)
Quarter: 2020Q2

REPORT INFORMATION
  Report Type: Report from Study
  Country: CA (occurrence: CA)
  Receive Date: 20200310
  Receipt Date: 20200522
  Transmission Date: 20200713
  Serious: Yes (Hospitalization, Other)
  Sender: FDA-Public Use
  Company Number: NVSC2019CA024595

PATIENT
  Sex: Male

DRUGS (3)
  1. SANDOZ ALFUZOSIN [Suspect]
     Active Substance: ALFUZOSIN
     Indication: PROSTATIC DISORDER
     Dosage: 10 MG, QD
     Route: 048
  2. SANDOZ MONTELUKAST [Suspect]
     Active Substance: MONTELUKAST SODIUM
     Indication: ASTHMA
     Dosage: 10 MG, QD
     Route: 048
  3. PULMICORT TURBUHALER [Concomitant]
     Active Substance: BUDESONIDE
     Indication: SINUSITIS
     Dosage: 0.5 MG, PRN
     Route: 045
     Dates: start: 2001

REACTIONS (6)
  - Asthma [Not Recovered/Not Resolved]
  - Dyspnoea [Unknown]
  - Cataract [Unknown]
  - Arthralgia [Unknown]
  - Drug resistance [Unknown]
  - Respiratory tract infection fungal [Unknown]

NARRATIVE: CASE EVENT DATE: 2019
